FAERS Safety Report 15793876 (Version 1)
Quarter: 2019Q1

REPORT INFORMATION
  Report Type: Spontaneous
  Country: DE (occurrence: DE)
  Receive Date: 20190107
  Receipt Date: 20190107
  Transmission Date: 20190417
  Serious: Yes (Other)
  Sender: FDA-Public Use
  Company Number: DE-AMREGENT-20182319

PATIENT
  Sex: Male
  Weight: 89 kg

DRUGS (1)
  1. FERINJECT [Suspect]
     Active Substance: FERRIC CARBOXYMALTOSE
     Dosage: 500 MG
     Route: 041
     Dates: start: 20181114, end: 20181114

REACTIONS (9)
  - Vomiting [Unknown]
  - Cold sweat [Unknown]
  - Blood pressure decreased [Unknown]
  - Hypotension [Unknown]
  - Dysgeusia [Unknown]
  - Pallor [Unknown]
  - Nausea [Unknown]
  - Tachycardia [Unknown]
  - Circulatory collapse [Unknown]

NARRATIVE: CASE EVENT DATE: 20181114
